FAERS Safety Report 8905258 (Version 1)
Quarter: 2012Q4

REPORT INFORMATION
  Report Type: 
  Country: AR (occurrence: AR)
  Receive Date: 20121112
  Receipt Date: 20121112
  Transmission Date: 20130627
  Serious: Yes (Other)
  Sender: FDA-Public Use
  Company Number: PHHY2012AR071142

PATIENT
  Age: 68 Year
  Sex: Male

DRUGS (3)
  1. LAPENAX [Suspect]
     Indication: SCHIZOPHRENIA
     Dates: start: 20050202
  2. ZOLPIDEM [Concomitant]
  3. CLONAZEPAM [Concomitant]

REACTIONS (2)
  - Chronic lymphocytic leukaemia [Not Recovered/Not Resolved]
  - Leukocytosis [Not Recovered/Not Resolved]
